FAERS Safety Report 10345843 (Version 1)
Quarter: 2014Q3

REPORT INFORMATION
  Report Type: Spontaneous
  Country: US (occurrence: US)
  Receive Date: 20140728
  Receipt Date: 20140728
  Transmission Date: 20150326
  Serious: Yes (Congenital Anomaly)
  Sender: FDA-Public Use
  Company Number: US-BIOMARINAP-US-2014-103746

PATIENT
  Age: 0 Day
  Sex: Female
  Weight: 2.68 kg

DRUGS (1)
  1. KUVAN [Suspect]
     Active Substance: SAPROPTERIN DIHYDROCHLORIDE
     Indication: PHENYLKETONURIA
     Route: 064

REACTIONS (2)
  - Maternal drugs affecting foetus [None]
  - Cardiac septal defect [Unknown]

NARRATIVE: CASE EVENT DATE: 20140624
